FAERS Safety Report 12531787 (Version 2)
Quarter: 2016Q4

REPORT INFORMATION
  Report Type: Spontaneous
  Country: TR (occurrence: TR)
  Receive Date: 20160706
  Receipt Date: 20161004
  Transmission Date: 20170207
  Serious: Yes (Hospitalization, Disabling, Other)
  Sender: FDA-Public Use
  Company Number: TR-PFIZER INC-2016326030

PATIENT
  Age: 55 Year
  Sex: Female
  Weight: 44 kg

DRUGS (6)
  1. ZITROMAX [Suspect]
     Active Substance: AZITHROMYCIN
     Indication: OTITIS MEDIA
     Dosage: 500 MG, 1X/DAY
     Route: 048
     Dates: start: 20160304, end: 20160307
  2. ZADEVITAL [Interacting]
     Active Substance: DIETARY SUPPLEMENT
     Indication: BLOOD CHOLESTEROL DECREASED
     Dosage: 500 MG, DAILY
     Route: 048
     Dates: start: 20160331, end: 20160407
  3. BELOC-ZOK MITE [Concomitant]
     Active Substance: METOPROLOL SUCCINATE
     Indication: HYPERTENSION
     Dosage: 50 MG, 1X/DAY
     Dates: start: 2012
  4. ZITROMAX [Interacting]
     Active Substance: AZITHROMYCIN
     Indication: SKIN INFECTION
  5. EUTHYROX [Concomitant]
     Active Substance: LEVOTHYROXINE SODIUM
     Indication: HYPOTHYROIDISM
     Dosage: 25 UNK, 1X/DAY
     Route: 048
     Dates: start: 2013
  6. ZITROMAX [Interacting]
     Active Substance: AZITHROMYCIN
     Indication: RESPIRATORY TRACT INFECTION

REACTIONS (10)
  - Blood albumin abnormal [Unknown]
  - Muscle atrophy [Unknown]
  - Loss of employment [Unknown]
  - Blood electrolytes abnormal [Unknown]
  - Depressed mood [Unknown]
  - Pain [Unknown]
  - Thrombocytopenia [Recovered/Resolved]
  - Adjustment disorder [Unknown]
  - Purpura fulminans [Recovering/Resolving]
  - Drug interaction [Unknown]

NARRATIVE: CASE EVENT DATE: 20160407
